FAERS Safety Report 6910670-1 (Version None)
Quarter: 2010Q3

REPORT INFORMATION
  Report Type: 
  Country: None (occurrence: None)
  Receive Date: 20100716
  Receipt Date: 20090727
  Transmission Date: 20110219
  Serious: Yes (Hospitalization)
  Sender: FDA-Public Use
  Company Number: 2009247351

PATIENT
  Sex: Male

DRUGS (3)
  1. CELEBREX [Suspect]
     Indication: ARTHRITIS
     Dates: start: 20090605, end: 20090619
  2. CELEBREX [Suspect]
     Indication: INFLAMMATION
     Dates: start: 20090605, end: 20090619
  3. PERCOCET [Concomitant]

REACTIONS (1)
  - MYOCARDIAL INFARCTION [None]
